FAERS Safety Report 7821417-9 (Version None)
Quarter: 2011Q4

REPORT INFORMATION
  Report Type: 
  Country: None (occurrence: None)
  Receive Date: 20111018
  Receipt Date: 20111011
  Transmission Date: 20120403
  Serious: Yes (Other)
  Sender: FDA-Public Use
  Company Number: US-ABBOTT-11P-163-0848553-00

PATIENT
  Sex: Male
  Weight: 47.67 kg

DRUGS (9)
  1. OXYCONTIN [Concomitant]
     Indication: PAIN
  2. METHOTREXATE [Concomitant]
     Indication: CROHN'S DISEASE
     Dates: start: 20090101
  3. KEPPRA [Concomitant]
     Indication: CONVULSION
  4. FIORICET [Concomitant]
     Indication: HEADACHE
  5. HUMIRA [Suspect]
     Route: 058
  6. HUMIRA [Suspect]
     Route: 058
     Dates: start: 20110201
  7. OXYCONTIN [Concomitant]
     Indication: ANTIDIARRHOEAL SUPPORTIVE CARE
  8. HUMIRA [Suspect]
     Indication: CROHN'S DISEASE
     Route: 058
     Dates: start: 20090331
  9. PREVACID [Suspect]
     Indication: GASTROOESOPHAGEAL REFLUX DISEASE
     Dates: end: 20110801

REACTIONS (10)
  - BLOOD MAGNESIUM DECREASED [None]
  - QUALITY OF LIFE DECREASED [None]
  - FEELING ABNORMAL [None]
  - FATIGUE [None]
  - ASTHENIA [None]
  - HYPERSOMNIA [None]
  - DECREASED APPETITE [None]
  - DRUG INTERACTION [None]
  - FRUSTRATION [None]
  - DEPRESSION [None]
